FAERS Safety Report 8031472-1 (Version None)
Quarter: 2011Q4

REPORT INFORMATION
  Report Type: 
  Country: None (occurrence: None)
  Receive Date: 20111202
  Receipt Date: 20090826
  Transmission Date: 20120403
  Serious: Yes (Hospitalization)
  Sender: FDA-Public Use
  Company Number: 2009-194848-NL

PATIENT
  Age: 24 Year
  Sex: Female
  Weight: 61.2356 kg

DRUGS (4)
  1. MULTI-VITAMINS [Concomitant]
  2. NUVARING [Suspect]
     Indication: MENSTRUATION IRREGULAR
     Dosage: 1 DF;
  3. NUVARING [Suspect]
     Indication: CONTRACEPTION
     Dosage: 1 DF;
  4. IBUPROFEN [Concomitant]

REACTIONS (5)
  - HEADACHE [None]
  - HERPES SIMPLEX [None]
  - LIGAMENT SPRAIN [None]
  - WEIGHT INCREASED [None]
  - PULMONARY EMBOLISM [None]
